FAERS Safety Report 5900658-1 (Version None)
Quarter: 2008Q3

REPORT INFORMATION
  Report Type: 
  Country: None (occurrence: None)
  Receive Date: 20080926
  Receipt Date: 20080916
  Transmission Date: 20090109
  Serious: Yes (Hospitalization)
  Sender: FDA-Public Use
  Company Number: FR-PFIZER INC-2008078897

PATIENT
  Sex: Male

DRUGS (5)
  1. VFEND [Suspect]
     Indication: EVIDENCE BASED TREATMENT
     Route: 048
     Dates: start: 20080101, end: 20080101
  2. ALLOPURINOL [Concomitant]
  3. COLCHIMAX [Concomitant]
  4. CORDARONE [Concomitant]
  5. CARDENSIEL [Concomitant]

REACTIONS (6)
  - BLOOD CREATININE INCREASED [None]
  - CHOLESTASIS [None]
  - DECREASED APPETITE [None]
  - DEHYDRATION [None]
  - NAUSEA [None]
  - VOMITING [None]
